FAERS Safety Report 5837833-0 (Version None)
Quarter: 2008Q3

REPORT INFORMATION
  Report Type: 
  Country: None (occurrence: None)
  Receive Date: 20080808
  Receipt Date: 20080219
  Transmission Date: 20090109
  Serious: No
  Sender: FDA-Public Use
  Company Number: A0710543A

PATIENT
  Age: 5 Year
  Sex: Male

DRUGS (2)
  1. PAXIL [Suspect]
     Indication: OBSESSIVE-COMPULSIVE DISORDER
     Dosage: .6MG PER DAY
     Route: 048
     Dates: start: 20080101
  2. VITAMIN TAB [Concomitant]

REACTIONS (2)
  - AGITATION [None]
  - DRUG INEFFECTIVE [None]
